FAERS Safety Report 8180245-8 (Version None)
Quarter: 2012Q1

REPORT INFORMATION
  Report Type: 
  Country: None (occurrence: None)
  Receive Date: 20120302
  Receipt Date: 20110610
  Transmission Date: 20120608
  Serious: No
  Sender: FDA-Public Use
  Company Number: US-GLAXOSMITHKLINE-A0876552A

PATIENT
  Age: 29 Year
  Sex: Female
  Weight: 63.6 kg

DRUGS (4)
  1. COPAXONE [Concomitant]
     Indication: MULTIPLE SCLEROSIS
     Dates: end: 20100301
  2. CLOBETASOL PROPIONATE [Suspect]
     Indication: DERMATITIS
     Dosage: 1APP SINGLE DOSE
     Route: 061
     Dates: start: 20100701, end: 20100701
  3. YASMIN [Concomitant]
     Dates: end: 20100501
  4. ALCOHOL [Concomitant]

REACTIONS (2)
  - MATERNAL EXPOSURE DURING PREGNANCY [None]
  - LIVE BIRTH [None]
